FAERS Safety Report 5624838-8 (Version None)
Quarter: 2008Q1

REPORT INFORMATION
  Report Type: 
  Country: None (occurrence: None)
  Receive Date: 20080208
  Receipt Date: 20080206
  Transmission Date: 20080703
  Serious: Yes (Hospitalization, Other)
  Sender: FDA-Public Use
  Company Number: 023501

PATIENT
  Age: 81 Year
  Sex: Female

DRUGS (2)
  1. WARFARIN SODIUM [Suspect]
     Indication: DEEP VEIN THROMBOSIS
     Dosage: 2 MG, QD, ORAL; 2.5 MG, QD, ORAL
     Route: 048
     Dates: start: 20050101, end: 20080123
  2. WARFARIN SODIUM [Suspect]
     Indication: DEEP VEIN THROMBOSIS
     Dosage: 2 MG, QD, ORAL; 2.5 MG, QD, ORAL
     Route: 048
     Dates: start: 20050101, end: 20080123

REACTIONS (3)
  - INTERNATIONAL NORMALISED RATIO INCREASED [None]
  - PNEUMONIA [None]
  - VAGINAL HAEMORRHAGE [None]
